FAERS Safety Report 14247292 (Version 1)
Quarter: 2017Q4

REPORT INFORMATION
  Report Type: Spontaneous
  Country: US (occurrence: US)
  Receive Date: 20171204
  Receipt Date: 20171204
  Transmission Date: 20180321
  Serious: No
  Sender: FDA-Public Use
  Company Number: US-ALLERGAN-1746849US

PATIENT
  Sex: Male

DRUGS (1)
  1. MEMANTINE HCL - BP [Suspect]
     Active Substance: MEMANTINE
     Indication: AMNESIA
     Dosage: 10 MG, UNK
     Route: 048

REACTIONS (2)
  - Dizziness [Unknown]
  - Product use in unapproved indication [Unknown]
